FAERS Safety Report 11188924 (Version 3)
Quarter: 2015Q3

REPORT INFORMATION
  Report Type: Report from Study
  Country: BR (occurrence: BR)
  Receive Date: 20150615
  Receipt Date: 20150924
  Transmission Date: 20151125
  Serious: Yes (Hospitalization, Other)
  Sender: FDA-Public Use
  Company Number: BR-ROCHE-1135176

PATIENT
  Age: 46 Year
  Sex: Female
  Weight: 89 kg

DRUGS (17)
  1. MABTHERA [Suspect]
     Active Substance: RITUXIMAB
     Indication: RHEUMATOID ARTHRITIS
     Dosage: D1, 1 CYCLE
     Route: 042
     Dates: start: 20111108
  2. MABTHERA [Suspect]
     Active Substance: RITUXIMAB
     Dosage: D15, 2 CYCLE
     Route: 042
     Dates: start: 20120427
  3. CHLOROQUINE [Concomitant]
     Active Substance: CHLOROQUINE\CHLOROQUINE PHOSPHATE
     Indication: IMMUNODEFICIENCY
  4. SERTRALINE [Concomitant]
     Active Substance: SERTRALINE HYDROCHLORIDE
  5. FUROSEMIDE. [Concomitant]
     Active Substance: FUROSEMIDE
     Route: 065
  6. VENLAFAXINE [Concomitant]
     Active Substance: VENLAFAXINE HYDROCHLORIDE
     Route: 065
  7. SYNTHROID [Concomitant]
     Active Substance: LEVOTHYROXINE SODIUM
     Route: 065
  8. PREDNISONE. [Concomitant]
     Active Substance: PREDNISONE
     Route: 065
  9. MABTHERA [Suspect]
     Active Substance: RITUXIMAB
     Dosage: D1, 2 CYCLE
     Route: 042
     Dates: start: 20120413
  10. MABTHERA [Suspect]
     Active Substance: RITUXIMAB
     Dosage: D15, 2 CYCLE
     Route: 042
     Dates: start: 20150609
  11. DORFLEX [Concomitant]
     Active Substance: CAFFEINE\DIPYRONE\ORPHENADRINE
     Indication: PAIN
  12. MABTHERA [Suspect]
     Active Substance: RITUXIMAB
     Dosage: D15, 1 CYCLE
     Route: 042
     Dates: start: 20111125
  13. RIVOTRIL [Concomitant]
     Active Substance: CLONAZEPAM
     Route: 065
  14. TYLENOL [Concomitant]
     Active Substance: ACETAMINOPHEN
     Indication: PAIN
  15. ADDERA [Concomitant]
     Active Substance: CHOLECALCIFEROL
     Route: 065
  16. MABTHERA [Suspect]
     Active Substance: RITUXIMAB
     Dosage: D15, 2 CYCLE
     Route: 042
     Dates: start: 20110816
  17. REUQUINOL [Concomitant]
     Active Substance: HYDROXYCHLOROQUINE SULFATE
     Route: 065

REACTIONS (20)
  - Syncope [Recovered/Resolved]
  - Cyst [Not Recovered/Not Resolved]
  - Spinal disorder [Not Recovered/Not Resolved]
  - Blood test abnormal [Unknown]
  - Pain [Not Recovered/Not Resolved]
  - Rheumatoid arthritis [Not Recovered/Not Resolved]
  - Immunodeficiency [Unknown]
  - Inflammation [Unknown]
  - Headache [Unknown]
  - Dizziness [Unknown]
  - Bone pain [Not Recovered/Not Resolved]
  - Red blood cell count decreased [Not Recovered/Not Resolved]
  - Malaise [Unknown]
  - Diabetes mellitus [Not Recovered/Not Resolved]
  - Weight increased [Recovering/Resolving]
  - Nasopharyngitis [Unknown]
  - Pneumonia [Unknown]
  - Asthenia [Not Recovered/Not Resolved]
  - Fatigue [Not Recovered/Not Resolved]
  - White blood cell count decreased [Not Recovered/Not Resolved]

NARRATIVE: CASE EVENT DATE: 20150610
